FAERS Safety Report 5535170-5 (Version None)
Quarter: 2007Q4

REPORT INFORMATION
  Report Type: 
  Country: None (occurrence: None)
  Receive Date: 20071206
  Receipt Date: 20071129
  Transmission Date: 20080405
  Serious: Yes (Other)
  Sender: FDA-Public Use
  Company Number: PHHO2007FR19445

PATIENT
  Age: 58 Year
  Sex: Female
  Weight: 62 kg

DRUGS (4)
  1. SANDOSTATIN LAR [Suspect]
     Indication: CARCINOID TUMOUR
     Dosage: DOUBLE BLIND
     Route: 048
     Dates: start: 20070830, end: 20071010
  2. RAD001 VS PLACEBO [Suspect]
     Indication: CARCINOID TUMOUR
     Dosage: DOUBLE BLIND
     Route: 048
     Dates: start: 20070830, end: 20071010
  3. FENOFIBRATE [Concomitant]
     Indication: HYPERCHOLESTEROLAEMIA
  4. PROPAFEN [Concomitant]
     Indication: HEADACHE

REACTIONS (3)
  - CHOLESTASIS [None]
  - CYTOLYTIC HEPATITIS [None]
  - LIVER FUNCTION TEST ABNORMAL [None]
